FAERS Safety Report 13640589 (Version 1)
Quarter: 2017Q2

REPORT INFORMATION
  Report Type: Spontaneous
  Country: US (occurrence: US)
  Receive Date: 20170609
  Receipt Date: 20170609
  Transmission Date: 20170830
  Serious: Yes (Hospitalization)
  Sender: FDA-Public Use
  Company Number: None

PATIENT
  Age: 43 Year
  Sex: Male
  Weight: 49 kg

DRUGS (4)
  1. CYCLOPHOSPHAMIDE. [Suspect]
     Active Substance: CYCLOPHOSPHAMIDE
     Dates: end: 20170504
  2. PREDNISONE. [Suspect]
     Active Substance: PREDNISONE
     Dates: end: 20170508
  3. VINCRISTINE SULFATE. [Suspect]
     Active Substance: VINCRISTINE SULFATE
     Dates: end: 20170504
  4. DOXORUBICIN HYDROCHLORIDE. [Suspect]
     Active Substance: DOXORUBICIN HYDROCHLORIDE
     Dates: end: 20170504

REACTIONS (6)
  - Dehydration [None]
  - Fatigue [None]
  - Decreased appetite [None]
  - Dizziness [None]
  - Otorrhoea [None]
  - Vomiting [None]

NARRATIVE: CASE EVENT DATE: 20170523
